FAERS Safety Report 23495690 (Version 1)
Quarter: 2024Q1

REPORT INFORMATION
  Report Type: Spontaneous
  Country: FR (occurrence: FR)
  Receive Date: 20240207
  Receipt Date: 20240207
  Transmission Date: 20240410
  Serious: Yes (Congenital Anomaly)
  Sender: FDA-Public Use
  Company Number: None

PATIENT
  Age: 15 Year
  Sex: Female

DRUGS (1)
  1. VALPROATE SODIUM [Suspect]
     Active Substance: VALPROATE SODIUM
     Indication: Bipolar disorder
     Route: 065

REACTIONS (4)
  - Dysgraphia [Recovering/Resolving]
  - Reading disorder [Recovering/Resolving]
  - Scoliosis [Not Recovered/Not Resolved]
  - Scoliosis [Not Recovered/Not Resolved]
